FAERS Safety Report 4873089-3 (Version None)
Quarter: 2005Q4

REPORT INFORMATION
  Report Type: 
  Country: None (occurrence: None)
  Receive Date: 20051201
  Receipt Date: 20050817
  Transmission Date: 20060501
  Serious: No
  Sender: FDA-Public Use
  Company Number: 2005PV001243

PATIENT
  Age: 57 Year
  Sex: Female
  Weight: 63.9572 kg

DRUGS (8)
  1. BYETTA [Suspect]
     Indication: DIABETES MELLITUS NON-INSULIN-DEPENDENT
     Dosage: 5 MCG; QD; SC
     Route: 058
     Dates: start: 20050726
  2. METFORMIN HCL [Concomitant]
  3. AVANDIA [Concomitant]
  4. PREGNIN [Concomitant]
  5. TAMOXIFEN CITRATE [Concomitant]
  6. LEVOXYL [Concomitant]
  7. ALTACE [Concomitant]
  8. ASPIRIN [Concomitant]

REACTIONS (6)
  - BLOOD GLUCOSE DECREASED [None]
  - DECREASED APPETITE [None]
  - EARLY SATIETY [None]
  - INJECTION SITE PAIN [None]
  - NAUSEA [None]
  - RETCHING [None]
